FAERS Safety Report 23657619 (Version 1)
Quarter: 2024Q1

REPORT INFORMATION
  Report Type: Spontaneous
  Country: US (occurrence: None)
  Receive Date: 20240320
  Receipt Date: 20240320
  Transmission Date: 20240410
  Serious: Yes (Hospitalization)
  Sender: FDA-Public Use
  Company Number: None

PATIENT
  Age: 80 Year
  Sex: Female

DRUGS (5)
  1. LENALIDOMIDE [Suspect]
     Active Substance: LENALIDOMIDE
     Indication: Plasma cell myeloma
     Dosage: 15MG DALIY X ORAL?
     Route: 048
     Dates: start: 20240223
  2. ISATUXIMAB [Concomitant]
  3. DEXAMETHASONE [Concomitant]
  4. ACYCLOVIR [Concomitant]
  5. ASPIRIN [Concomitant]

REACTIONS (2)
  - Neutropenia [None]
  - Thrombocytopenia [None]

NARRATIVE: CASE EVENT DATE: 20240313
